FAERS Safety Report 17747356 (Version 1)
Quarter: 2020Q2

REPORT INFORMATION
  Report Type: Spontaneous
  Country: US (occurrence: US)
  Receive Date: 20200505
  Receipt Date: 20200505
  Transmission Date: 20200714
  Serious: Yes (Hospitalization)
  Sender: FDA-Public Use
  Company Number: US-ABBVIE-20K-163-3391130-00

PATIENT
  Age: 42 Year
  Sex: Female

DRUGS (1)
  1. IMBRUVICA [Suspect]
     Active Substance: IBRUTINIB
     Indication: DISEASE PROGRESSION
     Route: 048
     Dates: start: 20150808

REACTIONS (6)
  - Weight increased [Unknown]
  - Muscle spasms [Unknown]
  - Stem cell transplant [Unknown]
  - Fatigue [Unknown]
  - Acne [Unknown]
  - Increased tendency to bruise [Unknown]

NARRATIVE: CASE EVENT DATE: 20170509
